FAERS Safety Report 5934525-4 (Version None)
Quarter: 2008Q4

REPORT INFORMATION
  Report Type: 
  Country: None (occurrence: None)
  Receive Date: 20081029
  Receipt Date: 20081024
  Transmission Date: 20090506
  Serious: Yes (Other)
  Sender: FDA-Public Use
  Company Number: HQWYE587825AUG04

PATIENT
  Sex: Female
  Weight: 77.18 kg

DRUGS (4)
  1. PREMPRO [Suspect]
     Indication: HOT FLUSH
     Dosage: UNSPECIFIED
     Route: 048
     Dates: start: 19970101, end: 20020916
  2. PROVERA [Suspect]
     Indication: HOT FLUSH
     Dosage: UNSPECIFIED
     Route: 048
     Dates: start: 19840101, end: 19970101
  3. ESTRATEST [Suspect]
  4. PREMARIN [Suspect]
     Indication: HOT FLUSH
     Dosage: UNSPECIFIED
     Route: 048
     Dates: start: 19830101, end: 19970101

REACTIONS (4)
  - BREAST CANCER METASTATIC [None]
  - OVARIAN CANCER METASTATIC [None]
  - PULMONARY EMBOLISM [None]
  - THROMBOSIS [None]
